FAERS Safety Report 13668864 (Version 1)
Quarter: 2017Q2

REPORT INFORMATION
  Report Type: Spontaneous
  Country: US (occurrence: US)
  Receive Date: 20170620
  Receipt Date: 20170620
  Transmission Date: 20170830
  Serious: Yes (Other)
  Sender: FDA-Public Use
  Company Number: None

PATIENT
  Age: 58 Year
  Sex: Male
  Weight: 68.1 kg

DRUGS (1)
  1. BUPRENORPHINE 5MCG/HR. [Suspect]
     Active Substance: BUPRENORPHINE
     Dates: start: 20170614, end: 20170617

REACTIONS (12)
  - Chills [None]
  - Drug ineffective [None]
  - Headache [None]
  - Dyspnoea [None]
  - Clumsiness [None]
  - Nausea [None]
  - Pyrexia [None]
  - Dizziness [None]
  - Hyperhidrosis [None]
  - Abdominal pain upper [None]
  - Withdrawal syndrome [None]
  - Photophobia [None]

NARRATIVE: CASE EVENT DATE: 20170614
